FAERS Safety Report 11984090 (Version 3)
Quarter: 2016Q2

REPORT INFORMATION
  Report Type: Report from Study
  Country: CO (occurrence: CO)
  Receive Date: 20160201
  Receipt Date: 20160531
  Transmission Date: 20160815
  Serious: Yes (Hospitalization)
  Sender: FDA-Public Use
  Company Number: PHHY2016CO012022

PATIENT
  Age: 35 Year
  Sex: Female
  Weight: 53 kg

DRUGS (5)
  1. REVOLADE [Suspect]
     Active Substance: ELTROMBOPAG
     Indication: IMMUNE THROMBOCYTOPENIC PURPURA
     Dosage: 25 MG, QD
     Route: 048
     Dates: start: 201506
  2. REVOLADE [Suspect]
     Active Substance: ELTROMBOPAG
     Dosage: 25 MG, BID (EVERY 12 HOURS)
     Route: 048
     Dates: start: 20151109, end: 201601
  3. REVOLADE [Suspect]
     Active Substance: ELTROMBOPAG
     Dosage: 25 MG, UNK
     Route: 048
     Dates: end: 20160311
  4. PREDNISOLONE. [Concomitant]
     Active Substance: PREDNISOLONE
     Indication: PRODUCT USED FOR UNKNOWN INDICATION
     Dosage: 50 MG, BID (2 AFTER LUNCH)
     Route: 065
     Dates: start: 201505, end: 201506
  5. DEXAMETHASONE. [Concomitant]
     Active Substance: DEXAMETHASONE
     Indication: PLATELET COUNT DECREASED
     Dosage: UNK UNK, ONCE/SINGLE
     Route: 065
     Dates: start: 201511, end: 201511

REACTIONS (4)
  - White blood cell count decreased [Unknown]
  - Platelet count decreased [Unknown]
  - Petechiae [Unknown]
  - Vomiting [Unknown]

NARRATIVE: CASE EVENT DATE: 20160125
